FAERS Safety Report 6956470-8 (Version None)
Quarter: 2010Q3

REPORT INFORMATION
  Report Type: 
  Country: None (occurrence: None)
  Receive Date: 20100830
  Receipt Date: 20100819
  Transmission Date: 20110219
  Serious: Yes (Other)
  Sender: FDA-Public Use
  Company Number: US-AMGEN-QUU430327

PATIENT
  Sex: Female

DRUGS (3)
  1. NEULASTA [Suspect]
     Indication: CHEMOTHERAPY
     Route: 065
     Dates: start: 20100806
  2. ADRIAMYCIN PFS [Concomitant]
     Dates: start: 20100804
  3. CYTOXAN [Concomitant]
     Dates: start: 20100804

REACTIONS (1)
  - NEUTROPENIA [None]
